FAERS Safety Report 9072864 (Version 1)
Quarter: 2013Q1

REPORT INFORMATION
  Report Type: Report from Study
  Country: US (occurrence: US)
  Receive Date: 20130129
  Receipt Date: 20130129
  Transmission Date: 20140127
  Serious: No
  Sender: FDA-Public Use
  Company Number: US-ABBOTT-12P-163-0942354-00

PATIENT
  Sex: Female
  Weight: 118.04 kg

DRUGS (5)
  1. HUMIRA 40 MG/0.8 ML PEN [Suspect]
     Indication: PSORIATIC ARTHROPATHY
     Dates: start: 2011, end: 201202
  2. HUMIRA 40 MG/0.8 ML PEN [Suspect]
     Indication: PSORIASIS
  3. ENBREL [Concomitant]
     Indication: PSORIASIS
     Dates: start: 2012
  4. ENBREL [Concomitant]
     Indication: PSORIATIC ARTHROPATHY
  5. MELOXICAM [Concomitant]
     Indication: INFLAMMATION

REACTIONS (4)
  - Drug ineffective [Not Recovered/Not Resolved]
  - Oedema peripheral [Recovering/Resolving]
  - Pain [Recovering/Resolving]
  - Psoriatic arthropathy [Recovering/Resolving]
